FAERS Safety Report 6086218-3 (Version None)
Quarter: 2009Q1

REPORT INFORMATION
  Report Type: 
  Country: None (occurrence: None)
  Receive Date: 20090218
  Receipt Date: 20090218
  Transmission Date: 20090719
  Serious: No
  Sender: FDA-Public Use
  Company Number: None

PATIENT
  Sex: Female

DRUGS (1)
  1. SALSALATE [Suspect]
     Dosage: 750 MG
     Dates: start: 20080201, end: 20090201

REACTIONS (2)
  - DEAFNESS UNILATERAL [None]
  - HEARING IMPAIRED [None]
